FAERS Safety Report 15985696 (Version 1)
Quarter: 2019Q1

REPORT INFORMATION
  Report Type: Spontaneous
  Country: AU (occurrence: AU)
  Receive Date: 20190220
  Receipt Date: 20190220
  Transmission Date: 20190418
  Serious: Yes (Hospitalization, Other)
  Sender: FDA-Public Use
  Company Number: PHHY2019AU035149

PATIENT
  Age: 54 Year
  Sex: Male
  Weight: 92.5 kg

DRUGS (1)
  1. GLIVEC [Suspect]
     Active Substance: IMATINIB MESYLATE
     Indication: CHRONIC MYELOID LEUKAEMIA
     Dosage: 400 MG, QD
     Route: 048
     Dates: start: 20180920, end: 20181009

REACTIONS (8)
  - Pyrexia [Unknown]
  - Peripheral swelling [Unknown]
  - Dyspnoea [Unknown]
  - Malaise [Unknown]
  - Rash generalised [Recovered/Resolved]
  - Swelling face [Unknown]
  - Exfoliative rash [Recovered/Resolved]
  - Rash [Unknown]

NARRATIVE: CASE EVENT DATE: 20181009
